FAERS Safety Report 11472297 (Version 3)
Quarter: 2016Q2

REPORT INFORMATION
  Report Type: Spontaneous
  Country: US (occurrence: US)
  Receive Date: 20150908
  Receipt Date: 20160607
  Transmission Date: 20160815
  Serious: No
  Sender: FDA-Public Use
  Company Number: US-SA-2015SA096431

PATIENT
  Age: 71 Year
  Sex: Female

DRUGS (6)
  1. TOUJEO [Suspect]
     Active Substance: INSULIN GLARGINE
     Indication: DIABETES MELLITUS
     Dosage: DOSE: VARIES, START 14 U
     Route: 065
     Dates: start: 201505
  2. SOLOSTAR [Suspect]
     Active Substance: DEVICE
     Indication: TYPE 2 DIABETES MELLITUS
     Dates: start: 201603
  3. SOLOSTAR [Suspect]
     Active Substance: DEVICE
     Indication: TYPE 2 DIABETES MELLITUS
     Dates: start: 201505
  4. INSULIN [Concomitant]
     Active Substance: INSULIN NOS
  5. CORTISONE [Concomitant]
     Active Substance: CORTISONE\HYDROCORTISONE
     Indication: SCIATICA
  6. TOUJEO [Suspect]
     Active Substance: INSULIN GLARGINE
     Indication: DIABETES MELLITUS
     Dosage: DOSE:19 UNIT(S)
     Route: 065
     Dates: start: 201603

REACTIONS (10)
  - Joint swelling [Unknown]
  - Hyperaesthesia [Unknown]
  - Injection site discolouration [Unknown]
  - Injection site haemorrhage [Unknown]
  - Vision blurred [Unknown]
  - Blood glucose decreased [Unknown]
  - Chest discomfort [Recovered/Resolved]
  - Confusional state [Unknown]
  - Glycosylated haemoglobin decreased [Unknown]
  - Incorrect product storage [Unknown]
